FAERS Safety Report 10335710 (Version 1)
Quarter: 2014Q3

REPORT INFORMATION
  Report Type: Spontaneous
  Country: US (occurrence: US)
  Receive Date: 20140723
  Receipt Date: 20140723
  Transmission Date: 20150326
  Serious: No
  Sender: FDA-Public Use
  Company Number: US-BRISTOL-MYERS SQUIBB COMPANY-19040807

PATIENT
  Age: 68 Year
  Sex: Male
  Weight: 133.78 kg

DRUGS (1)
  1. WARFARIN SODIUM. [Suspect]
     Active Substance: WARFARIN SODIUM
     Indication: ATRIAL FIBRILLATION
     Dosage: 1 DF = 7.5MG 3DAYS/WEEK,10MG 4DAYS/WEEK.?DOSE INCREASED TO 20 MG DAILY
     Dates: end: 201306

REACTIONS (1)
  - International normalised ratio decreased [Unknown]

NARRATIVE: CASE EVENT DATE: 201301
